FAERS Safety Report 7741490-6 (Version None)
Quarter: 2011Q3

REPORT INFORMATION
  Report Type: 
  Country: None (occurrence: None)
  Receive Date: 20110909
  Receipt Date: 20110901
  Transmission Date: 20111222
  Serious: Yes (Disabling, Other)
  Sender: FDA-Public Use
  Company Number: US-MERCK-1104USA03722

PATIENT
  Age: 48 Year
  Sex: Female

DRUGS (14)
  1. [THERAPY UNSPECIFIED] [Concomitant]
     Indication: RHEUMATOID ARTHRITIS
     Route: 065
  2. FELDENE [Concomitant]
     Indication: RHEUMATOID ARTHRITIS
     Route: 065
  3. FOSAMAX [Suspect]
     Route: 048
     Dates: start: 20030114, end: 20080826
  4. FOSAMAX PLUS D [Suspect]
     Indication: OSTEOPOROSIS
     Route: 048
     Dates: start: 20061025, end: 20070101
  5. FOSAMAX [Suspect]
     Route: 048
     Dates: start: 20030812, end: 20060101
  6. SYNTHROID [Concomitant]
     Indication: HYPOTHYROIDISM
     Route: 065
  7. FOSAMAX [Suspect]
     Route: 048
     Dates: start: 20030812, end: 20060101
  8. FOSAMAX [Suspect]
     Indication: OSTEOPOROSIS PROPHYLAXIS
     Route: 048
     Dates: start: 20030114, end: 20080801
  9. FOSAMAX [Suspect]
     Route: 048
     Dates: start: 20030114, end: 20080826
  10. HUMIRA [Concomitant]
     Indication: RHEUMATOID ARTHRITIS
     Route: 065
  11. FOSAMAX [Suspect]
     Route: 048
     Dates: start: 20030114, end: 20080826
  12. FOSAMAX [Suspect]
     Route: 048
     Dates: start: 20030114, end: 20080826
  13. PLAQUENIL [Concomitant]
     Indication: RHEUMATOID ARTHRITIS
     Route: 065
  14. FOSAMAX [Suspect]
     Indication: OSTEOPOROSIS
     Route: 048
     Dates: start: 20030114, end: 20080801

REACTIONS (6)
  - PAIN IN EXTREMITY [None]
  - ANKLE FRACTURE [None]
  - GAIT DISTURBANCE [None]
  - IMPAIRED HEALING [None]
  - FOOT FRACTURE [None]
  - FEMUR FRACTURE [None]
